FAERS Safety Report 6003024-6 (Version None)
Quarter: 2008Q4

REPORT INFORMATION
  Report Type: 
  Country: None (occurrence: None)
  Receive Date: 20081212
  Receipt Date: 20081204
  Transmission Date: 20090506
  Serious: Yes (Hospitalization)
  Sender: FDA-Public Use
  Company Number: 6047514

PATIENT
  Age: 74 Year
  Sex: Male

DRUGS (10)
  1. BISOPROLOL FUMARATE [Suspect]
     Indication: DRUG USE FOR UNKNOWN INDICATION
     Dosage: 1 DOSAGE FORMS (1 DOSAGE FORMS, 1 IN 1 D)
     Route: 048
  2. MODURETIC (TABLET) (HYDROCHLOROTHIAZIDE, AMILORIDE HYDRCHLORIDE) [Suspect]
     Indication: DRUG USE FOR UNKNOWN INDICATION
     Dosage: 1 DOSAGE FORMS (1 DOSAGE FORMS, 1 IN 1 D)
     Route: 048
  3. MODURETIC 5-50 [Suspect]
     Dosage: 1 DOSAGE FORMS ( I DOSAGE FORMS, 1 IN 1 D)
     Route: 048
  4. SPIRIVA [Suspect]
     Indication: DRUG USE FOR UNKNOWN INDICATION
     Dosage: NOT REPORTED 36 IU (18 IU,2 IN 1 D)
     Route: 055
     Dates: end: 20080901
  5. SPIRIVA [Suspect]
     Indication: DRUG USE FOR UNKNOWN INDICATION
     Dosage: NOT REPORTED 36 IU (18 IU,2 IN 1 D)
     Route: 055
     Dates: start: 20080903
  6. ALLOPURINOL [Suspect]
     Indication: DRUG USE FOR UNKNOWN INDICATION
     Dosage: NOT REPORTED 1 DOSAGE FORMS (1 DOSAGE FORMS, 1 IN 1 D)
     Route: 048
     Dates: end: 20080901
  7. ALLOPURINOL [Suspect]
     Indication: DRUG USE FOR UNKNOWN INDICATION
     Dosage: NOT REPORTED 1 DOSAGE FORMS (1 DOSAGE FORMS, 1 IN 1 D)
     Route: 048
     Dates: start: 20080903
  8. KARDEGIC (75 MG, POWDER FOR ORAL SOLUTION) (ACETYLSALICYLATE LYSINE) [Suspect]
     Indication: DRUG USE FOR UNKNOWN INDICATION
     Dosage: 1 DOSAGE FORMS (1 DOSAGE FORMS, 1 IN 1 D)
     Route: 048
     Dates: end: 20080901
  9. KARDEGIC (75 MG, POWDER FOR ORAL SOLUTION) (ACETYLSALICYLATE LYSINE) [Suspect]
     Indication: DRUG USE FOR UNKNOWN INDICATION
     Dosage: 1 DOSAGE FORMS (1 DOSAGE FORMS, 1 IN 1 D)
     Route: 048
     Dates: start: 20080903
  10. SYMBICORT [Suspect]
     Indication: DRUG USE FOR UNKNOWN INDICATION
     Dosage: NOT REPORTED
     Route: 055
     Dates: end: 20080901

REACTIONS (3)
  - CONFUSIONAL STATE [None]
  - FAECALOMA [None]
  - HYPONATRAEMIA [None]
